FAERS Safety Report 9117904 (Version 1)
Quarter: 2013Q1

REPORT INFORMATION
  Report Type: Spontaneous
  Country: GB (occurrence: GB)
  Receive Date: 20130208
  Receipt Date: 20130208
  Transmission Date: 20140127
  Serious: Yes (Disabling)
  Sender: FDA-Public Use
  Company Number: GB-PFIZER INC-2013048191

PATIENT
  Age: 27 Year
  Sex: Male
  Weight: 76.2 kg

DRUGS (5)
  1. CHAMPIX [Suspect]
     Indication: SMOKING CESSATION THERAPY
     Dosage: 0.5 MG
     Route: 048
     Dates: start: 20130114
  2. CHAMPIX [Suspect]
     Dosage: 1 MG
     Route: 048
     Dates: end: 20130123
  3. VENTOLIN [Concomitant]
  4. SERETIDE [Concomitant]
  5. CETIRIZINE [Concomitant]

REACTIONS (4)
  - Depression [Not Recovered/Not Resolved]
  - Feeling of despair [Not Recovered/Not Resolved]
  - Grief reaction [Not Recovered/Not Resolved]
  - Fear [Not Recovered/Not Resolved]
